FAERS Safety Report 16731548 (Version 3)
Quarter: 2020Q1

REPORT INFORMATION
  Report Type: Spontaneous
  Country: US (occurrence: US)
  Receive Date: 20190822
  Receipt Date: 20200121
  Transmission Date: 20200409
  Serious: No
  Sender: FDA-Public Use
  Company Number: US-SA-2019SA230220

PATIENT
  Age: 78 Year
  Sex: Female

DRUGS (1)
  1. DUPIXENT [Suspect]
     Active Substance: DUPILUMAB
     Indication: DERMATITIS ATOPIC
     Dosage: 300 MG, QOW
     Route: 058
     Dates: start: 20190709

REACTIONS (5)
  - Pruritus [Unknown]
  - Product dose omission [Unknown]
  - Injection site haemorrhage [Unknown]
  - Injection site pain [Unknown]
  - Therapeutic response decreased [Unknown]
